FAERS Safety Report 10674312 (Version 1)
Quarter: 2014Q4

REPORT INFORMATION
  Report Type: Spontaneous
  Country: US (occurrence: None)
  Receive Date: 20141223
  Receipt Date: 20141223
  Transmission Date: 20150529
  Serious: No
  Sender: FDA-Public Use
  Company Number: None

PATIENT
  Age: 38 Year
  Sex: Male
  Weight: 89.36 kg

DRUGS (2)
  1. GABAPENTIN. [Suspect]
     Active Substance: GABAPENTIN
     Indication: BACK PAIN
     Dosage: 1 TO 3 PILLS THREE TIMES DAILY  TAKEN BY MOUTH
     Route: 048
     Dates: start: 20141218, end: 20141218
  2. GABAPENTIN. [Suspect]
     Active Substance: GABAPENTIN
     Indication: NEURALGIA
     Dosage: 1 TO 3 PILLS THREE TIMES DAILY  TAKEN BY MOUTH
     Route: 048
     Dates: start: 20141218, end: 20141218

REACTIONS (9)
  - Chills [None]
  - Feeling cold [None]
  - Disturbance in attention [None]
  - Disorientation [None]
  - Insomnia [None]
  - Fatigue [None]
  - Pyrexia [None]
  - Oropharyngeal pain [None]
  - Throat irritation [None]

NARRATIVE: CASE EVENT DATE: 20141219
